FAERS Safety Report 18424542 (Version 1)
Quarter: 2020Q4

REPORT INFORMATION
  Report Type: Spontaneous
  Country: IT (occurrence: IT)
  Receive Date: 20201026
  Receipt Date: 20201026
  Transmission Date: 20210114
  Serious: Yes (Death, Other)
  Sender: FDA-Public Use
  Company Number: IT-AUROBINDO-AUR-APL-2020-053372

PATIENT
  Age: 85 Year
  Sex: Female
  Weight: 87 kg

DRUGS (5)
  1. ACETYLSALICYLIC ACID [Suspect]
     Active Substance: ASPIRIN
     Indication: ANTICOAGULANT THERAPY
     Dosage: UNK
     Route: 065
  2. OMEPRAZOLE. [Concomitant]
     Active Substance: OMEPRAZOLE
     Indication: PRODUCT USED FOR UNKNOWN INDICATION
     Dosage: UNK
     Route: 065
  3. CLOPIDOGREL [Suspect]
     Active Substance: CLOPIDOGREL BISULFATE
     Indication: ANTICOAGULANT THERAPY
     Dosage: UNK
     Route: 065
  4. EDOXABAN [Suspect]
     Active Substance: EDOXABAN TOSYLATE
     Indication: ATRIAL FIBRILLATION
     Dosage: 30 MILLIGRAM
     Route: 065
  5. EDOXABAN [Suspect]
     Active Substance: EDOXABAN TOSYLATE
     Dosage: 60 MILLIGRAM
     Route: 065

REACTIONS (4)
  - Haemorrhage [Fatal]
  - Off label use [Recovered/Resolved]
  - Melaena [Fatal]
  - Myocardial ischaemia [Fatal]
